FAERS Safety Report 18998265 (Version 3)
Quarter: 2022Q1

REPORT INFORMATION
  Report Type: Spontaneous
  Country: US (occurrence: US)
  Receive Date: 20210311
  Receipt Date: 20220315
  Transmission Date: 20220424
  Serious: No
  Sender: FDA-Public Use
  Company Number: US-PFIZER INC-2021169822

PATIENT
  Age: 61 Year
  Sex: Female
  Weight: 80.726 kg

DRUGS (10)
  1. IBRANCE [Suspect]
     Active Substance: PALBOCICLIB
     Indication: Breast cancer female
     Dosage: 125 MG
  2. IBRANCE [Suspect]
     Active Substance: PALBOCICLIB
     Dosage: 100 MG, CYCLIC, (DAILY FOR 21 DAYS, THEN OFF FOR 7 DAYS)
     Route: 048
     Dates: start: 202009
  3. AMBIEN [Concomitant]
     Active Substance: ZOLPIDEM TARTRATE
     Dosage: 10 MG
  4. MELATONIN [Concomitant]
     Active Substance: MELATONIN
     Dosage: 2.5 MG
  5. DULOXETINE HYDROCHLORIDE [Concomitant]
     Active Substance: DULOXETINE HYDROCHLORIDE
     Dosage: 30 MG
  6. OMEPRAZOLE [Concomitant]
     Active Substance: OMEPRAZOLE
     Dosage: 20 MG
  7. LOSARTAN POTASSIUM [Concomitant]
     Active Substance: LOSARTAN POTASSIUM
     Dosage: 100 MG
  8. LEVOTHYROXINE [Concomitant]
     Active Substance: LEVOTHYROXINE
     Dosage: 100 UG
  9. LETROZOLE [Concomitant]
     Active Substance: LETROZOLE
     Dosage: 2.5 MG
  10. XGEVA [Concomitant]
     Active Substance: DENOSUMAB
     Dosage: UNK [120 MG/1.7 VIAL]

REACTIONS (13)
  - Disease recurrence [Unknown]
  - White blood cell count decreased [Unknown]
  - Fatigue [Unknown]
  - Aphthous ulcer [Unknown]
  - Neutrophil count decreased [Unknown]
  - COVID-19 [Unknown]
  - Anaemia [Unknown]
  - Vitamin D decreased [Unknown]
  - Musculoskeletal discomfort [Unknown]
  - Arthritis [Unknown]
  - Dry skin [Unknown]
  - Hair injury [Unknown]
  - Ocular discomfort [Unknown]
